FAERS Safety Report 4826716-0 (Version None)
Quarter: 2005Q4

REPORT INFORMATION
  Report Type: 
  Country: None (occurrence: None)
  Receive Date: 20051111
  Receipt Date: 20051111
  Transmission Date: 20060501
  Serious: Yes (Life-Threatening, Hospitalization)
  Sender: FDA-Public Use
  Company Number: None

PATIENT
  Age: 77 Year
  Sex: Male
  Weight: 92.9874 kg

DRUGS (1)
  1. WARFARIN  5MG [Suspect]
     Indication: DEEP VEIN THROMBOSIS
     Dosage: 5MG  DAILY PO
     Route: 048

REACTIONS (1)
  - EPISTAXIS [None]
